FAERS Safety Report 5533447-0 (Version None)
Quarter: 2007Q4

REPORT INFORMATION
  Report Type: 
  Country: None (occurrence: None)
  Receive Date: 20071204
  Receipt Date: 20071122
  Transmission Date: 20080405
  Serious: Yes (Other)
  Sender: FDA-Public Use
  Company Number: US-PFIZER INC-2007099834

PATIENT
  Sex: Female

DRUGS (8)
  1. CHANTIX [Suspect]
     Indication: SMOKING CESSATION THERAPY
     Dates: start: 20070720, end: 20071122
  2. LOPRESSOR [Concomitant]
  3. PENTOXIFYLLINE [Concomitant]
  4. ASPIRIN [Concomitant]
  5. ALL OTHER THERAPEUTIC PRODUCTS [Concomitant]
  6. LUTEIN [Concomitant]
  7. GARLIC [Concomitant]
  8. GINKO BILOBA [Concomitant]

REACTIONS (7)
  - ABNORMAL DREAMS [None]
  - ARTHRALGIA [None]
  - FEELING ABNORMAL [None]
  - HYPOAESTHESIA [None]
  - HYPOKINESIA [None]
  - REDUCED DEXTERITY [None]
  - WEIGHT DECREASED [None]
